FAERS Safety Report 25117111 (Version 1)
Quarter: 2025Q1

REPORT INFORMATION
  Report Type: Spontaneous
  Country: DE (occurrence: DE)
  Receive Date: 20250325
  Receipt Date: 20250325
  Transmission Date: 20250408
  Serious: Yes (Hospitalization, Disabling)
  Sender: BIOCON
  Company Number: DE-DCGMA-25204806

PATIENT
  Age: 70 Year
  Sex: Female

DRUGS (2)
  1. ROSUVASTATIN [Suspect]
     Active Substance: ROSUVASTATIN
     Indication: Hypertension
     Dosage: DAILY DOSE: 10 MG EVERY 1 DAY
     Route: 048
     Dates: start: 20250130
  2. CANDESARTAN CILEXETIL\HYDROCHLOROTHIAZIDE [Suspect]
     Active Substance: CANDESARTAN CILEXETIL\HYDROCHLOROTHIAZIDE
     Indication: Hypertension
     Dosage: 8/12.5
     Route: 048
     Dates: start: 20250130

REACTIONS (4)
  - Femoral neck fracture [Unknown]
  - Fall [Unknown]
  - Dizziness [Unknown]
  - Product use in unapproved indication [Unknown]

NARRATIVE: CASE EVENT DATE: 20250215
